FAERS Safety Report 13299120 (Version 1)
Quarter: 2017Q1

REPORT INFORMATION
  Report Type: Spontaneous
  Country: FR (occurrence: FR)
  Receive Date: 20170306
  Receipt Date: 20170306
  Transmission Date: 20170428
  Serious: Yes (Hospitalization)
  Sender: FDA-Public Use
  Company Number: FR-SA-2017SA034527

PATIENT
  Age: 73 Year
  Sex: Female

DRUGS (11)
  1. DUOPLAVIN [Concomitant]
     Active Substance: ASPIRIN\CLOPIDOGREL
  2. PRAVASTATIN. [Concomitant]
     Active Substance: PRAVASTATIN
  3. HYPERIUM [Concomitant]
     Active Substance: RILMENIDINE PHOSPHATE
  4. ACTONEL [Concomitant]
     Active Substance: RISEDRONATE SODIUM
  5. TRAMADOL. [Suspect]
     Active Substance: TRAMADOL
     Indication: POST HERPETIC NEURALGIA
     Route: 048
     Dates: start: 20170126, end: 20170206
  6. CO-APROVEL [Suspect]
     Active Substance: HYDROCHLOROTHIAZIDE\IRBESARTAN
     Indication: HYPERTENSION
     Route: 048
     Dates: end: 20170206
  7. ZOVIRAX [Suspect]
     Active Substance: ACYCLOVIR
     Indication: HERPES ZOSTER
     Route: 048
     Dates: start: 20170126, end: 20170202
  8. LEVOTHYROX [Concomitant]
     Active Substance: LEVOTHYROXINE
  9. NOVONORM [Concomitant]
     Active Substance: REPAGLINIDE
  10. EUPANTOL [Concomitant]
     Active Substance: PANTOPRAZOLE SODIUM
  11. METFORMIN [Concomitant]
     Active Substance: METFORMIN HYDROCHLORIDE

REACTIONS (2)
  - Anuria [Recovered/Resolved]
  - Renal failure [Recovering/Resolving]

NARRATIVE: CASE EVENT DATE: 20170206
